FAERS Safety Report 13344621 (Version 1)
Quarter: 2017Q1

REPORT INFORMATION
  Report Type: Spontaneous
  Country: US (occurrence: US)
  Receive Date: 20170317
  Receipt Date: 20170317
  Transmission Date: 20170428
  Serious: Yes (Hospitalization, Other)
  Sender: FDA-Public Use
  Company Number: US-AMGEN-USASP2017038583

PATIENT
  Age: 74 Year
  Sex: Female

DRUGS (11)
  1. PROLIA [Suspect]
     Active Substance: DENOSUMAB
     Indication: OSTEOPOROSIS
     Dosage: 60 MG, Q6MO
     Route: 065
     Dates: start: 201511
  2. SYNTHROID [Concomitant]
     Active Substance: LEVOTHYROXINE SODIUM
     Dosage: UNK
  3. AZOR [Concomitant]
     Active Substance: AMLODIPINE BESYLATE\OLMESARTAN MEDOXOMIL
     Indication: BLOOD PRESSURE ABNORMAL
  4. VITAMIN D [Concomitant]
     Active Substance: CHOLECALCIFEROL
     Dosage: UNK
  5. SIMPONI [Concomitant]
     Active Substance: GOLIMUMAB
     Indication: PSORIATIC ARTHROPATHY
     Dosage: UNK
  6. OMEPRAZOLE. [Concomitant]
     Active Substance: OMEPRAZOLE
     Dosage: UNK
  7. LIPITOR [Concomitant]
     Active Substance: ATORVASTATIN CALCIUM
     Indication: BLOOD CHOLESTEROL ABNORMAL
     Dosage: UNK
  8. EVISTA [Concomitant]
     Active Substance: RALOXIFENE HYDROCHLORIDE
     Dosage: UNK
  9. TUMS [Concomitant]
     Active Substance: CALCIUM CARBONATE
     Dosage: UNK
  10. MOBIC [Concomitant]
     Active Substance: MELOXICAM
     Indication: PSORIATIC ARTHROPATHY
  11. PREDNISONE. [Concomitant]
     Active Substance: PREDNISONE
     Dosage: UNK

REACTIONS (6)
  - Psoriatic arthropathy [Unknown]
  - Dysstasia [Unknown]
  - Abasia [Unknown]
  - Scoliosis [Unknown]
  - Activities of daily living impaired [Unknown]
  - Tooth fracture [Unknown]

NARRATIVE: CASE EVENT DATE: 2017
